FAERS Safety Report 18530875 (Version 4)
Quarter: 2021Q1

REPORT INFORMATION
  Report Type: Spontaneous
  Country: DE (occurrence: DE)
  Receive Date: 20201121
  Receipt Date: 20210101
  Transmission Date: 20210419
  Serious: Yes (Hospitalization, Disabling, Other)
  Sender: FDA-Public Use
  Company Number: NVSC2020DE305024

PATIENT
  Age: 53 Year
  Sex: Male
  Weight: 97 kg

DRUGS (2)
  1. TASIGNA [Suspect]
     Active Substance: NILOTINIB
     Dosage: 600 MG, QD
     Route: 048
     Dates: start: 202011, end: 20201217
  2. TASIGNA [Suspect]
     Active Substance: NILOTINIB
     Indication: CHRONIC MYELOID LEUKAEMIA
     Dosage: 300 MG, BID (300 MG / 2 DOSAGE FORMS)(4 X DAILY)
     Route: 065
     Dates: start: 20191204, end: 202010

REACTIONS (16)
  - Dry skin [Unknown]
  - Nocturia [Unknown]
  - Synovial cyst [Unknown]
  - Joint effusion [Unknown]
  - Osteonecrosis [Not Recovered/Not Resolved]
  - Bone marrow oedema [Unknown]
  - Bone density decreased [Unknown]
  - Haemoglobin decreased [Unknown]
  - Mental disorder [Unknown]
  - Blood pressure increased [Unknown]
  - Malaise [Unknown]
  - Incorrect product dosage form administered [Unknown]
  - Arthralgia [Not Recovered/Not Resolved]
  - Gait disturbance [Unknown]
  - Meniscus injury [Unknown]
  - Chondropathy [Unknown]

NARRATIVE: CASE EVENT DATE: 20200120
